FAERS Safety Report 16857496 (Version 1)
Quarter: 2019Q3

REPORT INFORMATION
  Report Type: Spontaneous
  Country: US (occurrence: US)
  Receive Date: 20190926
  Receipt Date: 20190926
  Transmission Date: 20191005
  Serious: No
  Sender: FDA-Public Use
  Company Number: US-FRESENIUS MEDICAL CARE RENAL THERAPIES GROUP-FMC-1909-001183

PATIENT
  Sex: Male
  Weight: 70.37 kg

DRUGS (1)
  1. DELFLEX [Suspect]
     Active Substance: CALCIUM CHLORIDE\DEXTROSE\MAGNESIUM CHLORIDE\SODIUM CHLORIDE\SODIUM LACTATE
     Indication: END STAGE RENAL DISEASE
     Dosage: NO TIDAL THERAPY, PRESCRIBED FILL VOLUME FOR EACH CYCLE 2000 ML FOR 5 CYCLES, WITH NO LAST FILL, NO
     Route: 033

REACTIONS (1)
  - Abdominal distension [Recovered/Resolved]
